FAERS Safety Report 17761530 (Version 1)
Quarter: 2020Q2

REPORT INFORMATION
  Report Type: Spontaneous
  Country: US (occurrence: US)
  Receive Date: 20200508
  Receipt Date: 20200508
  Transmission Date: 20200714
  Serious: Yes (Other)
  Sender: FDA-Public Use
  Company Number: US-PERRIGO-20US006579

PATIENT
  Age: 34 Year
  Sex: Female

DRUGS (6)
  1. PREVACID [Suspect]
     Active Substance: LANSOPRAZOLE
     Indication: DYSPEPSIA
     Dosage: 30 TO 60 MG, QD
     Route: 048
     Dates: start: 200304, end: 200308
  2. PANTOPRAZOLE [Suspect]
     Active Substance: PANTOPRAZOLE
     Indication: DYSPEPSIA
     Dosage: 40 MG, QD
     Route: 048
     Dates: start: 201204
  3. PRILOSEC [Suspect]
     Active Substance: OMEPRAZOLE MAGNESIUM
     Indication: DYSPEPSIA
     Dosage: 20 MG, QD
     Route: 048
     Dates: start: 199511, end: 199512
  4. NEXIUM [Suspect]
     Active Substance: ESOMEPRAZOLE MAGNESIUM
     Indication: DYSPEPSIA
     Dosage: UNKNOWN, UNKNOWN
     Route: 048
     Dates: start: 201107, end: 201108
  5. PREVACID 24 HR [Suspect]
     Active Substance: LANSOPRAZOLE
     Indication: DYSPEPSIA
     Dosage: 20 MG, QD
     Route: 048
  6. PROTONIX                           /00661201/ [Suspect]
     Active Substance: OMEPRAZOLE
     Indication: DYSPEPSIA
     Dosage: 40 MG, QD
     Route: 048
     Dates: start: 200305, end: 201710

REACTIONS (16)
  - Dialysis [Recovered/Resolved]
  - Nephropathy [Unknown]
  - Peritoneal dialysis [Unknown]
  - Nephrotic syndrome [Unknown]
  - Renal artery stenosis [Unknown]
  - Proteinuria [Unknown]
  - Urine abnormality [Unknown]
  - End stage renal disease [Not Recovered/Not Resolved]
  - Renal injury [Unknown]
  - Renal ischaemia [Unknown]
  - Renal transplant [Recovered/Resolved]
  - Renal impairment [Unknown]
  - Chronic kidney disease [Not Recovered/Not Resolved]
  - Renal cyst [Unknown]
  - Glomerulonephritis membranous [Unknown]
  - Focal segmental glomerulosclerosis [Unknown]

NARRATIVE: CASE EVENT DATE: 20030422
